FAERS Safety Report 7392355-3 (Version None)
Quarter: 2011Q2

REPORT INFORMATION
  Report Type: 
  Country: None (occurrence: None)
  Receive Date: 20110404
  Receipt Date: 20110329
  Transmission Date: 20111010
  Serious: No
  Sender: FDA-Public Use
  Company Number: US-PFIZER INC-2011069922

PATIENT
  Sex: Female
  Weight: 49.887 kg

DRUGS (5)
  1. XENAZINE [Suspect]
     Dosage: 12.5 MG, TWICE DAILY
     Dates: start: 20101101
  2. ADVIL PM [Suspect]
     Indication: INSOMNIA
     Dosage: UNK
  3. XENAZINE [Suspect]
     Indication: CHOREA
     Dosage: 25 MG, TWICE DAILY
     Dates: start: 20100701
  4. KLONOPIN [Concomitant]
     Dosage: UNK
  5. BENADRYL [Suspect]
     Indication: INSOMNIA
     Dosage: UNK

REACTIONS (7)
  - EMOTIONAL DISTRESS [None]
  - VERTIGO POSITIONAL [None]
  - INSOMNIA [None]
  - ANXIETY [None]
  - MALAISE [None]
  - VISION BLURRED [None]
  - CLAUSTROPHOBIA [None]
